FAERS Safety Report 15408062 (Version 1)
Quarter: 2018Q3

REPORT INFORMATION
  Report Type: Spontaneous
  Country: US (occurrence: US)
  Receive Date: 20180920
  Receipt Date: 20180920
  Transmission Date: 20181010
  Serious: Yes (Hospitalization)
  Sender: FDA-Public Use
  Company Number: US-JNJFOC-20180913895

PATIENT
  Age: 61 Year
  Sex: Female

DRUGS (1)
  1. INVOKANA [Suspect]
     Active Substance: CANAGLIFLOZIN
     Indication: TYPE 2 DIABETES MELLITUS
     Route: 048
     Dates: start: 20140512

REACTIONS (5)
  - Abscess limb [Unknown]
  - Soft tissue infection [Unknown]
  - Toe amputation [Unknown]
  - Cellulitis [Unknown]
  - Gangrene [Unknown]

NARRATIVE: CASE EVENT DATE: 20151117
